FAERS Safety Report 4685361-0 (Version None)
Quarter: 2005Q2

REPORT INFORMATION
  Report Type: 
  Country: None (occurrence: None)
  Receive Date: 20050608
  Receipt Date: 20050413
  Transmission Date: 20051028
  Serious: Yes (Life-Threatening, Hospitalization, Other)
  Sender: FDA-Public Use
  Company Number: 13296

PATIENT
  Sex: Male
  Weight: 3.7 kg

DRUGS (4)
  1. WELLBUTRIN [Suspect]
     Indication: MAJOR DEPRESSION
     Dosage: 300MG PER DAY
     Dates: start: 20040401
  2. TRICYCLIC ANTIDEPRESSANT [Concomitant]
  3. PROTONIX [Concomitant]
  4. MULTI-VITAMINS [Concomitant]

REACTIONS (5)
  - APNOEA [None]
  - CYANOSIS [None]
  - DRUG EXPOSURE DURING PREGNANCY [None]
  - DRUG WITHDRAWAL SYNDROME [None]
  - RESPIRATORY DISTRESS [None]
